FAERS Safety Report 12237373 (Version 1)
Quarter: 2016Q2

REPORT INFORMATION
  Report Type: Spontaneous
  Country: US (occurrence: US)
  Receive Date: 20160405
  Receipt Date: 20160405
  Transmission Date: 20160815
  Serious: No
  Sender: FDA-Public Use
  Company Number: US-INVAGEN PHARMACEUTICALS, INC.-1050212

PATIENT
  Age: 27 Year
  Sex: Female
  Weight: 54.55 kg

DRUGS (3)
  1. CANDIDA TROPICALIS. [Concomitant]
     Active Substance: CANDIDA TROPICALIS
  2. MULTI VITAMIN AND MINERAL VITAMIN [Concomitant]
     Active Substance: .ALPHA.-TOCOPHEROL ACETATE, D-\ASCORBIC ACID\CALCIUM PANTOTHENATE\FOLIC ACID\MANGANESE\NIACINAMIDE\PYRIDOXINE\RIBOFLAVIN\THIAMINE\VITAMIN A\ZINC OXIDE
  3. SERTRALINE [Suspect]
     Active Substance: SERTRALINE HYDROCHLORIDE
     Indication: DEPRESSION
     Route: 048

REACTIONS (3)
  - Dizziness [Unknown]
  - Malaise [Unknown]
  - Feeling drunk [Unknown]
